FAERS Safety Report 24679862 (Version 2)
Quarter: 2025Q1

REPORT INFORMATION
  Report Type: Other
  Country: CA (occurrence: CA)
  Receive Date: 20241129
  Receipt Date: 20250312
  Transmission Date: 20250408
  Serious: No
  Sender: TOLMAR
  Company Number: CA-TOLMAR, INC.-24CA053986

PATIENT
  Age: 79 Year
  Sex: Male

DRUGS (3)
  1. ELIGARD [Suspect]
     Active Substance: LEUPROLIDE ACETATE
     Indication: Prostate cancer
     Dosage: 30 MILLIGRAM, Q 4 MONTH
     Route: 058
     Dates: start: 20240720
  2. ELIGARD [Suspect]
     Active Substance: LEUPROLIDE ACETATE
     Dosage: 30 MILLIGRAM, Q 4 MONTH
     Route: 058
     Dates: start: 20241108
  3. ELIGARD [Suspect]
     Active Substance: LEUPROLIDE ACETATE
     Dosage: 30 MILLIGRAM, Q 4 MONTH
     Route: 058
     Dates: start: 20250228

REACTIONS (5)
  - Injection site pain [Recovered/Resolved]
  - Injection site pain [Recovered/Resolved]
  - Hot flush [Not Recovered/Not Resolved]
  - Hyperhidrosis [Unknown]
  - Back pain [Unknown]

NARRATIVE: CASE EVENT DATE: 20241108
